FAERS Safety Report 6143566-6 (Version None)
Quarter: 2009Q2

REPORT INFORMATION
  Report Type: 
  Country: None (occurrence: None)
  Receive Date: 20090403
  Receipt Date: 20090324
  Transmission Date: 20091009
  Serious: Yes (Other)
  Sender: FDA-Public Use
  Company Number: ES-PFIZER INC-2009175679

PATIENT

DRUGS (3)
  1. LYRICA [Suspect]
     Indication: LUMBAR HERNIA
     Dosage: 75 MG, 2X/DAY
     Route: 048
     Dates: start: 20081118, end: 20081215
  2. IBUPROFEN [Concomitant]
     Dosage: 600 MG, 3X/DAY
  3. OMEPRAZOLE [Concomitant]
     Dosage: 20 MG, 1X/DAY
     Route: 048

REACTIONS (2)
  - HIRSUTISM [None]
  - PETIT MAL EPILEPSY [None]
